FAERS Safety Report 14552721 (Version 1)
Quarter: 2018Q1

REPORT INFORMATION
  Report Type: Report from Study
  Country: HK (occurrence: HK)
  Receive Date: 20180220
  Receipt Date: 20180220
  Transmission Date: 20180509
  Serious: Yes (Other)
  Sender: FDA-Public Use
  Company Number: HK-AUROBINDO-AUR-APL-2018-005786

PATIENT
  Age: 64 Year
  Sex: Male

DRUGS (3)
  1. GLIBENCLAMID [Suspect]
     Active Substance: GLYBURIDE
     Indication: DIABETES MELLITUS
     Dosage: UNK
  2. METFORMIN [Suspect]
     Active Substance: METFORMIN HYDROCHLORIDE
     Indication: DIABETES MELLITUS
     Dosage: UNK
  3. PHENFORMIN [Suspect]
     Active Substance: PHENFORMIN
     Indication: DIABETES MELLITUS
     Dosage: UNK

REACTIONS (2)
  - Lactic acidosis [Unknown]
  - Hypoglycaemia [Unknown]
